FAERS Safety Report 8608786-7 (Version None)
Quarter: 2012Q3

REPORT INFORMATION
  Report Type: 
  Country: None (occurrence: None)
  Receive Date: 20120821
  Receipt Date: 20120817
  Transmission Date: 20120928
  Serious: Yes (Hospitalization, Other)
  Sender: FDA-Public Use
  Company Number: US-TEVA-345085USA

PATIENT
  Sex: Male
  Weight: 98 kg

DRUGS (11)
  1. NEBIVOLOL HYDROCHLORIDE [Suspect]
     Dosage: 10 MILLIGRAM DAILY;
     Route: 048
     Dates: start: 20120509, end: 20120509
  2. AMLODIPINE [Concomitant]
     Indication: HYPERTENSION
     Dosage: 10 MILLIGRAM DAILY;
     Route: 048
  3. LISINOPRIL [Concomitant]
     Indication: HYPERTENSION
     Dosage: 40 MILLIGRAM DAILY;
     Route: 048
  4. METFORMIN HCL [Concomitant]
     Indication: DIABETES MELLITUS
     Dosage: 2000 MILLIGRAM DAILY;
     Route: 048
  5. CLOPIDOGREL BISULFATE [Concomitant]
     Dosage: 75 MILLIGRAM DAILY;
     Route: 048
  6. POTASSIUM [Concomitant]
  7. FISH OIL [Concomitant]
  8. CLONIDINE [Suspect]
     Indication: HYPERTENSION
     Dosage: .4 MILLIGRAM DAILY; STARTED ON OR PRIOR TO 19-JAN-2009
     Dates: end: 20120507
  9. NEBIVOLOL HYDROCHLORIDE [Suspect]
     Indication: HYPERTENSION
     Dosage: 5 MILLIGRAM DAILY;
     Route: 048
     Dates: start: 20120508, end: 20120508
  10. NITROSTAT [Concomitant]
     Dosage: EVERY 5 MINUTES UP TO 3
  11. LASIX [Concomitant]
     Indication: CARDIAC FAILURE CONGESTIVE
     Dosage: 40 MILLIGRAM DAILY;
     Route: 048

REACTIONS (2)
  - THYROID MASS [None]
  - BLOOD PRESSURE INCREASED [None]
